FAERS Safety Report 5919129-1 (Version None)
Quarter: 2008Q4

REPORT INFORMATION
  Report Type: 
  Country: None (occurrence: None)
  Receive Date: 20081015
  Receipt Date: 20081008
  Transmission Date: 20090506
  Serious: Yes (Other)
  Sender: FDA-Public Use
  Company Number: SE-JNJFOC-20081001422

PATIENT
  Age: 35 Year
  Sex: Female

DRUGS (4)
  1. DURAGESIC-100 [Suspect]
     Route: 062
  2. DURAGESIC-100 [Suspect]
     Route: 062
  3. DURAGESIC-100 [Suspect]
     Indication: PAIN
     Route: 062
  4. KETOGAN [Concomitant]
     Route: 065

REACTIONS (4)
  - HALLUCINATION [None]
  - INCORRECT DRUG ADMINISTRATION DURATION [None]
  - NIGHTMARE [None]
  - VOMITING [None]
